FAERS Safety Report 6358396-X (Version None)
Quarter: 2009Q3

REPORT INFORMATION
  Report Type: 
  Country: None (occurrence: None)
  Receive Date: 20090916
  Receipt Date: 20090901
  Transmission Date: 20100115
  Serious: Yes (Other)
  Sender: FDA-Public Use
  Company Number: CN-GENENTECH-289526

PATIENT
  Age: 43 Year
  Sex: Male

DRUGS (6)
  1. MABTHERA [Suspect]
     Indication: PEMPHIGUS
     Dosage: 375 MG/M2, 1/WEEK
     Route: 065
  2. PREDNISOLONE [Suspect]
     Indication: PEMPHIGUS
     Dosage: 80 MG, UNK
     Route: 065
  3. MOXIFLOXACIN HCL [Suspect]
     Indication: ANTIBIOTIC THERAPY
     Dosage: 400 MG, UNK
     Route: 065
  4. METHOTREXATE [Concomitant]
     Indication: DRUG USE FOR UNKNOWN INDICATION
     Dosage: UNK
  5. CYCLOPHOSPHAMIDE [Concomitant]
     Indication: DRUG USE FOR UNKNOWN INDICATION
  6. IMMUNE GLOBULIN INTRAVENOUS (HUMAN) [Concomitant]
     Indication: DRUG USE FOR UNKNOWN INDICATION

REACTIONS (4)
  - ASTHENIA [None]
  - HAEMOLYTIC ANAEMIA [None]
  - PYREXIA [None]
  - URTICARIA [None]
